FAERS Safety Report 4342253-4 (Version None)
Quarter: 2004Q2

REPORT INFORMATION
  Report Type: 
  Country: None (occurrence: None)
  Receive Date: 20040420
  Receipt Date: 20040420
  Transmission Date: 20050107
  Serious: Yes (Hospitalization)
  Sender: FDA-Public Use
  Company Number: None

PATIENT
  Sex: Female
  Weight: 81.6475 kg

DRUGS (8)
  1. CRESTOR [Suspect]
     Indication: HYPERLIPIDAEMIA
     Dosage: 10 MG DAILY ORAL
     Route: 048
     Dates: start: 20040301, end: 20040416
  2. ASPIRIN [Concomitant]
  3. FUROSEMIDE [Concomitant]
  4. LANSOPRAZOLE [Concomitant]
  5. LEVOFLOXACIN [Concomitant]
  6. LISINOPRIL [Concomitant]
  7. POLYCARBOPHIL [Concomitant]
  8. TOLTERODINE [Concomitant]

REACTIONS (3)
  - FALL [None]
  - HAND FRACTURE [None]
  - MUSCULAR WEAKNESS [None]
